FAERS Safety Report 5736084-8 (Version None)
Quarter: 2008Q2

REPORT INFORMATION
  Report Type: 
  Country: None (occurrence: None)
  Receive Date: 20080509
  Receipt Date: 20080424
  Transmission Date: 20081010
  Serious: Yes (Life-Threatening, Hospitalization)
  Sender: FDA-Public Use
  Company Number: 002#2#2008-00295

PATIENT
  Age: 75 Year
  Sex: Female
  Weight: 58.0604 kg

DRUGS (5)
  1. NEUPRO [Suspect]
     Indication: DRUG USE FOR UNKNOWN INDICATION
     Dosage: 6MG/24H, 1 IN 1 TRANSDERMAL
     Route: 062
     Dates: start: 20070501
  2. SYNTHROID [Concomitant]
  3. LIPITOR [Concomitant]
  4. DEPAKOTE [Concomitant]
  5. ZYPREXA [Concomitant]

REACTIONS (4)
  - DYSPHAGIA [None]
  - LIFE SUPPORT [None]
  - SPEECH DISORDER [None]
  - UNEVALUABLE EVENT [None]
